FAERS Safety Report 17782418 (Version 1)
Quarter: 2020Q2

REPORT INFORMATION
  Report Type: Spontaneous
  Country: NL (occurrence: NL)
  Receive Date: 20200514
  Receipt Date: 20200514
  Transmission Date: 20200714
  Serious: Yes (Other)
  Sender: FDA-Public Use
  Company Number: NL-ACCORD-181750

PATIENT
  Sex: Female
  Weight: 75 kg

DRUGS (3)
  1. ACETYLSALICYLIC ACID [Concomitant]
     Active Substance: ASPIRIN
     Dosage: TABLET, 80 MG (MILLIGRAM)
  2. ALUMINIUM HYDROXIDE/MAGNESIUM HYDROXIDE [Concomitant]
     Active Substance: ALUMINUM HYDROXIDE\MAGNESIUM HYDROXIDE
  3. ATORVASTATIN/ATORVASTATIN CALCIUM [Suspect]
     Active Substance: ATORVASTATIN CALCIUM
     Indication: ANGINA PECTORIS
     Dosage: 1 PER DAY
     Dates: start: 20160813, end: 20200415

REACTIONS (3)
  - Muscle rupture [Recovering/Resolving]
  - Muscle spasms [Recovering/Resolving]
  - Muscular weakness [Recovering/Resolving]
